FAERS Safety Report 13766805 (Version 1)
Quarter: 2017Q3

REPORT INFORMATION
  Report Type: Spontaneous
  Country: US (occurrence: US)
  Receive Date: 20170719
  Receipt Date: 20170719
  Transmission Date: 20171127
  Serious: Yes (Other)
  Sender: FDA-Public Use
  Company Number: US-STRIDES ARCOLAB LIMITED-2017SP008371

PATIENT

DRUGS (1)
  1. MYCOPHENOLATE MOFETIL. [Suspect]
     Active Substance: MYCOPHENOLATE MOFETIL
     Indication: DERMATITIS ATOPIC
     Dosage: 1.5 G, BID
     Route: 065

REACTIONS (4)
  - Oesophageal candidiasis [Recovered/Resolved]
  - Dysphagia [Recovered/Resolved]
  - Vomiting projectile [Recovered/Resolved]
  - Choking [Recovered/Resolved]
